FAERS Safety Report 19694795 (Version 1)
Quarter: 2021Q3

REPORT INFORMATION
  Report Type: Spontaneous
  Country: DE (occurrence: DE)
  Receive Date: 20210813
  Receipt Date: 20210813
  Transmission Date: 20211014
  Serious: Yes (Hospitalization)
  Sender: FDA-Public Use
  Company Number: DE-TEVA-2021-DE-1940755

PATIENT
  Age: 60 Year
  Sex: Female

DRUGS (9)
  1. ULTIBRO BREEZHALER 85MIKROGRAMM/43MIKROGRAMM [Concomitant]
     Dosage: 1 DOSAGE FORMS DAILY; 1?0?0?0, METERED DOSE INHALER
     Route: 055
  2. RAMUCIRUMAB [Suspect]
     Active Substance: RAMUCIRUMAB
     Dosage: ACCORDING TO PLAN
     Route: 042
  3. METAMIZOL [Concomitant]
     Active Substance: METAMIZOLE SODIUM
     Dosage: 120 GTT DAILY; 1?1?1?1, DROPS
     Route: 048
  4. ONDANSETRON ABZ 8MG [Concomitant]
     Active Substance: ONDANSETRON
     Dosage: 8 MG,  UP TO TWICE IF MCP IS INSUFFICIENT
     Route: 060
  5. MCP?1A PHARMA 10MG [Concomitant]
     Dosage: 10 MG, UP TO THREE TIMES IN CASE OF NAUSEA
     Route: 048
  6. ESOMEP 20MG [Concomitant]
     Dosage: 20 MILLIGRAM DAILY; 1?0?0?0
     Route: 048
  7. PACLITAXEL. [Suspect]
     Active Substance: PACLITAXEL
     Dosage: ACCORDING TO PLAN
     Route: 042
  8. FENTANYL?1A PHARMA 25UG/H MATRIXPFLASTER [Concomitant]
     Dosage: 25 MCG, CHANGE EVERY 3 DAYS
     Route: 062
  9. FENTANYL 0,1MG?ROTEXMEDICA [Concomitant]
     Dosage: 0.1 MG, UP TO SIX TIMES A DAY
     Route: 060

REACTIONS (3)
  - Application site erythema [Unknown]
  - Pain [Unknown]
  - Condition aggravated [Unknown]
